FAERS Safety Report 9915844 (Version 1)
Quarter: 2014Q1

REPORT INFORMATION
  Report Type: Spontaneous
  Country: US (occurrence: None)
  Receive Date: 20140220
  Receipt Date: 20140220
  Transmission Date: 20141002
  Serious: Yes (Other)
  Sender: FDA-Public Use
  Company Number: None

PATIENT
  Age: 7 Year
  Sex: Male
  Weight: 39.01 kg

DRUGS (1)
  1. DEXMETHYLPHENIDATE [Suspect]
     Route: 048
     Dates: start: 20131113, end: 20131218

REACTIONS (3)
  - Tachycardia [None]
  - Abdominal pain [None]
  - Vomiting [None]
